FAERS Safety Report 7500406-8 (Version None)
Quarter: 2011Q2

REPORT INFORMATION
  Report Type: 
  Country: None (occurrence: None)
  Receive Date: 20110524
  Receipt Date: 20110217
  Transmission Date: 20111010
  Serious: Yes (Other)
  Sender: FDA-Public Use
  Company Number: US-BRISTOL-MYERS SQUIBB COMPANY-15559446

PATIENT
  Age: 73 Year
  Sex: Female

DRUGS (3)
  1. ONGLYZA [Suspect]
  2. METFORMIN HCL [Suspect]
  3. LEVEMIR [Suspect]

REACTIONS (1)
  - HYPOGLYCAEMIA [None]
